APPROVED DRUG PRODUCT: TACROLIMUS
Active Ingredient: TACROLIMUS
Strength: EQ 5MG BASE/ML
Dosage Form/Route: INJECTABLE;INJECTION
Application: A203900 | Product #001
Applicant: HOSPIRA INC
Approved: Aug 25, 2017 | RLD: No | RS: No | Type: DISCN